FAERS Safety Report 6503749-X (Version None)
Quarter: 2009Q4

REPORT INFORMATION
  Report Type: 
  Country: None (occurrence: None)
  Receive Date: 20091217
  Receipt Date: 20091211
  Transmission Date: 20100525
  Serious: Yes (Hospitalization)
  Sender: FDA-Public Use
  Company Number: US-BRISTOL-MYERS SQUIBB COMPANY-14838221

PATIENT
  Age: 44 Year
  Sex: Male
  Weight: 165 kg

DRUGS (16)
  1. ABILIFY [Suspect]
     Indication: SCHIZOPHRENIA
     Dosage: INTERRUPTED 6 YEARS AGO, RESTARTED ON 18OCT09 CURRENLY TAKING 20MG 1/2 TAB QD
  2. SEROQUEL [Suspect]
     Indication: SCHIZOPHRENIA
  3. KLONOPIN [Suspect]
     Dosage: AT BED TIME INCREASED TO 2 TABS AT BED TIME INCREASED TO 2-4 MG DAILY FROM 1-3 MG DAILY.
     Route: 048
  4. PREVACID [Concomitant]
  5. POTASSIUM [Concomitant]
  6. SPIRONOLACTONE [Concomitant]
  7. TOPROL-XL [Concomitant]
  8. BABY ASPIRIN [Concomitant]
  9. RAMIPRIL [Concomitant]
  10. LASIX [Concomitant]
  11. FLOMAX [Concomitant]
  12. ZONEGRAN [Concomitant]
  13. COUMADIN [Concomitant]
     Dosage: 1 DOSAGE FORM= 1 1/2 TABLETS, 2DAYS PER WEEK
     Dates: start: 20051001
  14. PERPHENAZINE [Concomitant]
     Dosage: AT BED TIME: 8 MG TO 16 MG; DISCONTINUED AT 8 MG
     Dates: start: 20091009
  15. ADVAIR DISKUS 100/50 [Concomitant]
     Dates: start: 20090101
  16. AMBIEN [Concomitant]
     Dosage: EVERY NIGHT
     Dates: start: 20091022

REACTIONS (2)
  - HALLUCINATION, AUDITORY [None]
  - INSOMNIA [None]
